FAERS Safety Report 12713899 (Version 2)
Quarter: 2016Q3

REPORT INFORMATION
  Report Type: Spontaneous
  Country: DE (occurrence: DE)
  Receive Date: 20160905
  Receipt Date: 20160916
  Transmission Date: 20161109
  Serious: Yes (Death, Hospitalization)
  Sender: FDA-Public Use
  Company Number: DE-ROCHE-1825117

PATIENT
  Age: 69 Year
  Sex: Male
  Weight: 89 kg

DRUGS (2)
  1. XELODA [Suspect]
     Active Substance: CAPECITABINE
     Indication: RECTAL CANCER
     Dosage: DATE OF MOST RECENT DOSE: 13/JUL/2016
     Route: 048
     Dates: start: 20160617
  2. 5-FLUOROURACIL [Concomitant]
     Active Substance: FLUOROURACIL
     Indication: CHEMOTHERAPY
     Route: 065
     Dates: start: 201606, end: 201607

REACTIONS (3)
  - Oesophageal perforation [Fatal]
  - Mucosal necrosis [Fatal]
  - Sepsis [Fatal]

NARRATIVE: CASE EVENT DATE: 20160718
